FAERS Safety Report 16139784 (Version 2)
Quarter: 2020Q3

REPORT INFORMATION
  Report Type: Spontaneous
  Country: FR (occurrence: FR)
  Receive Date: 20190401
  Receipt Date: 20200922
  Transmission Date: 20201102
  Serious: Yes (Other)
  Sender: FDA-Public Use
  Company Number: FR-JNJFOC-20190325470

PATIENT
  Age: 35 Year
  Sex: Female

DRUGS (12)
  1. PARACETAMOL/PSEUDOEPHEDRINE HCL/TRIPROLIDINE HCL [Suspect]
     Active Substance: ACETAMINOPHEN\PSEUDOEPHEDRINE HYDROCHLORIDE\TRIPROLIDINE
     Route: 048
     Dates: start: 201901
  2. CETIRIZINE HYDROCHLORIDE. [Suspect]
     Active Substance: CETIRIZINE HYDROCHLORIDE
     Indication: NASOPHARYNGITIS
     Dosage: TOOK FOR 4 DAYS AT AN UNKNOWN DOSE BUT AFTER THE BEGINNING OF PREGNANCY 2 TABLETS A DAY
     Route: 048
     Dates: start: 201901
  3. PARACETAMOL / CHLORPHENAMINE MALEATE / ASCORBIC ACID [Suspect]
     Active Substance: ACETAMINOPHEN\ASCORBIC ACID\CHLORPHENIRAMINE MALEATE
     Indication: NASOPHARYNGITIS
     Dosage: TOOK FOR 4 DAYS AT AN UNKNOWN DOSE BUT AFTER THE BEGINNING OF PREGNANCY 2 TABLETS A DAY
     Route: 048
     Dates: start: 201901
  4. CETIRIZINE HYDROCHLORIDE/PSEUDOEPHEDRINE HYDROCHLORIDE [Suspect]
     Active Substance: CETIRIZINE HYDROCHLORIDE\PSEUDOEPHEDRINE HYDROCHLORIDE
     Route: 048
     Dates: start: 201901
  5. PARACETAMOL/PSEUDOEPHEDRINE HCL/TRIPROLIDINE HCL [Suspect]
     Active Substance: ACETAMINOPHEN\PSEUDOEPHEDRINE HYDROCHLORIDE\TRIPROLIDINE
     Indication: NASOPHARYNGITIS
     Dosage: TOOK FOR 4 DAYS AT AN UNKNOWN DOSE BUT AFTER THE BEGINNING OF PREGNANCY 2 TABLETS A DAY
     Route: 048
     Dates: start: 201901
  6. PARACETAMOL / CHLORPHENAMINE MALEATE / ASCORBIC ACID [Suspect]
     Active Substance: ACETAMINOPHEN\ASCORBIC ACID\CHLORPHENIRAMINE MALEATE
     Route: 048
     Dates: start: 201901
  7. PARACETAMOL / CHLORPHENAMINE MALEATE / ASCORBIC ACID [Suspect]
     Active Substance: ACETAMINOPHEN\ASCORBIC ACID\CHLORPHENIRAMINE MALEATE
     Indication: NASOPHARYNGITIS
     Dosage: TOOK FOR 4 DAYS AT AN UNKNOWN DOSE BUT AFTER THE BEGINNING OF PREGNANCY 2 TABLETS A DAY
     Route: 048
     Dates: start: 201901
  8. PARACETAMOL/DIPHENHYDRAMINE HCL/PSEUDOEPHEDRINE HCL [Suspect]
     Active Substance: ACETAMINOPHEN\DIPHENHYDRAMINE\PSEUDOEPHEDRINE
     Indication: NASOPHARYNGITIS
     Dosage: TOOK FOR 4 DAYS AT AN UNKNOWN DOSE BUT AFTER THE BEGINNING OF PREGNANCY 2 TABLETS A DAY
     Route: 048
     Dates: start: 201901
  9. CETIRIZINE HYDROCHLORIDE. [Suspect]
     Active Substance: CETIRIZINE HYDROCHLORIDE
     Route: 048
     Dates: start: 201901
  10. PARACETAMOL / CHLORPHENAMINE MALEATE / ASCORBIC ACID [Suspect]
     Active Substance: ACETAMINOPHEN\ASCORBIC ACID\CHLORPHENIRAMINE MALEATE
     Route: 048
     Dates: start: 201901
  11. PARACETAMOL/DIPHENHYDRAMINE HCL/PSEUDOEPHEDRINE HCL [Suspect]
     Active Substance: ACETAMINOPHEN\DIPHENHYDRAMINE\PSEUDOEPHEDRINE
     Route: 048
     Dates: start: 201901
  12. CETIRIZINE HYDROCHLORIDE/PSEUDOEPHEDRINE HYDROCHLORIDE [Suspect]
     Active Substance: CETIRIZINE HYDROCHLORIDE\PSEUDOEPHEDRINE HYDROCHLORIDE
     Indication: NASOPHARYNGITIS
     Dosage: TOOK FOR 4 DAYS AT AN UNKNOWN DOSE BUT AFTER THE BEGINNING OF PREGNANCY 2 TABLETS A DAY
     Route: 048
     Dates: start: 201901

REACTIONS (1)
  - Abortion spontaneous [Unknown]

NARRATIVE: CASE EVENT DATE: 201902
